FAERS Safety Report 4584977-X (Version None)
Quarter: 2005Q1

REPORT INFORMATION
  Report Type: 
  Country: None (occurrence: None)
  Receive Date: 20050217
  Receipt Date: 20041129
  Transmission Date: 20050727
  Serious: No
  Sender: FDA-Public Use
  Company Number: US-GLAXOSMITHKLINE-A0535385A

PATIENT
  Age: 42 Year

DRUGS (2)
  1. WELLBUTRIN XL [Suspect]
     Indication: ILL-DEFINED DISORDER
     Dosage: 150MG PER DAY
     Route: 048
     Dates: start: 20041123
  2. ATIVAN [Concomitant]

REACTIONS (3)
  - EATING DISORDER [None]
  - HYPERACUSIS [None]
  - INSOMNIA [None]
